FAERS Safety Report 17258547 (Version 2)
Quarter: 2020Q1

REPORT INFORMATION
  Report Type: Spontaneous
  Country: GB (occurrence: GB)
  Receive Date: 20200110
  Receipt Date: 20200207
  Transmission Date: 20200409
  Serious: Yes (Other)
  Sender: FDA-Public Use
  Company Number: GB-ASTRAZENECA-2020SE03706

PATIENT
  Age: 10 Month
  Sex: Female
  Weight: 7.2 kg

DRUGS (5)
  1. MOVICOL [Concomitant]
     Active Substance: POLYETHYLENE GLYCOL 3350\POTASSIUM CHLORIDE\SODIUM BICARBONATE\SODIUM CHLORIDE
     Indication: CONSTIPATION
     Dosage: LIQUID BY NG ROUTE
  2. SYNAGIS [Suspect]
     Active Substance: PALIVIZUMAB
     Indication: PRODUCT USED FOR UNKNOWN INDICATION
     Dosage: FIRST SEASON
     Route: 030
     Dates: start: 20191001, end: 20191103
  3. CAPTOPRIL. [Concomitant]
     Active Substance: CAPTOPRIL
     Indication: CARDIAC FAILURE
     Dosage: LIQUID BY NG ROUTE
  4. FUROSEMIDE. [Concomitant]
     Active Substance: FUROSEMIDE
     Indication: CARDIAC FAILURE
     Dosage: LIQUID BY NG ROUTE
  5. OMEPRAZOLE. [Concomitant]
     Active Substance: OMEPRAZOLE
     Indication: UNEVALUABLE EVENT
     Dosage: LIQUID BY NG ROUTE

REACTIONS (1)
  - Bronchiolitis [Recovered/Resolved]

NARRATIVE: CASE EVENT DATE: 20191103
